FAERS Safety Report 22246623 (Version 4)
Quarter: 2023Q2

REPORT INFORMATION
  Report Type: Spontaneous
  Country: LV (occurrence: LV)
  Receive Date: 20230424
  Receipt Date: 20230613
  Transmission Date: 20230722
  Serious: Yes (Hospitalization, Other)
  Sender: FDA-Public Use
  Company Number: LV-OTSUKA-2023_009188

PATIENT
  Age: 22 Year
  Sex: Male

DRUGS (42)
  1. OLANZAPINE [Suspect]
     Active Substance: OLANZAPINE
     Indication: Psychotic symptom
     Dosage: 10MG,QD,COMBINATION WITH HALOPERIDOL
     Route: 065
     Dates: start: 202104
  2. OLANZAPINE [Suspect]
     Active Substance: OLANZAPINE
     Indication: Schizophrenia
     Dosage: 20 MG, QD,COMBINATION WITH HALOPERIDOL
     Route: 065
     Dates: start: 202104
  3. OLANZAPINE [Suspect]
     Active Substance: OLANZAPINE
     Dosage: 20 MG, QD,COMBINATION WITH HALOPERIDOL
     Route: 065
     Dates: start: 202104
  4. OLANZAPINE [Suspect]
     Active Substance: OLANZAPINE
     Dosage: 20 MG, QD,COMBINATION WITH HALOPERIDOL
     Route: 065
     Dates: start: 202105
  5. OLANZAPINE [Suspect]
     Active Substance: OLANZAPINE
     Dosage: 20 MG, QD,COMBINATION WITH HALOPERIDOL
     Route: 065
     Dates: start: 202105
  6. OLANZAPINE [Suspect]
     Active Substance: OLANZAPINE
     Dosage: 20MG,QD,COMBINATION WITH RISPERIDONE
     Route: 065
     Dates: start: 202106
  7. OLANZAPINE [Suspect]
     Active Substance: OLANZAPINE
     Dosage: 20 MG, QD,COMBINATION WITH RISPERIDONE, QUETIAPINE
     Route: 065
     Dates: start: 202107
  8. OLANZAPINE [Suspect]
     Active Substance: OLANZAPINE
     Dosage: 20MG,COMBINATION WITH RISPERIDONE, BUSPIRONE
     Route: 065
     Dates: start: 202109
  9. OLANZAPINE [Suspect]
     Active Substance: OLANZAPINE
     Dosage: 20MG,QD,COMBINATION WITH RISPERIDONE, CARIPRAZINE
     Route: 065
     Dates: start: 202110
  10. OLANZAPINE [Suspect]
     Active Substance: OLANZAPINE
     Dosage: 20 MG, QD,COMBINATION WITH CARIPRAZINE, BUSPIRONE
     Route: 065
     Dates: start: 202111
  11. OLANZAPINE [Suspect]
     Active Substance: OLANZAPINE
     Dosage: 20 MG,COMBINATION WITH CARIPRAZINE, BUSPIRONE
     Route: 065
     Dates: start: 202112
  12. OLANZAPINE [Suspect]
     Active Substance: OLANZAPINE
     Dosage: 10 MG, QD,COMBINATION WITH CARIPRAZINE
     Route: 065
     Dates: start: 202201
  13. OLANZAPINE [Suspect]
     Active Substance: OLANZAPINE
     Dosage: 10MG,QD,COMBINATION WITH CARIPRAZINE
     Route: 065
     Dates: start: 202202
  14. ARIPIPRAZOLE [Suspect]
     Active Substance: ARIPIPRAZOLE
     Indication: Schizophrenia
     Dosage: 15 MILLIGRAM, 15 MG
     Route: 065
     Dates: start: 202105
  15. HALOPERIDOL [Suspect]
     Active Substance: HALOPERIDOL
     Indication: Psychotic symptom
     Dosage: 15 MILLIGRAM, QD, 15 MG/ DAY
     Route: 065
     Dates: start: 202104, end: 2021
  16. HALOPERIDOL [Suspect]
     Active Substance: HALOPERIDOL
     Indication: Schizophrenia
     Dosage: 15 MILLIGRAM, QD, 15 MG/ DAY
     Route: 065
     Dates: start: 202104, end: 2021
  17. HALOPERIDOL [Suspect]
     Active Substance: HALOPERIDOL
     Dosage: 7.5 MILLIGRAM, QD, 7.5 MG/DAY
     Route: 065
     Dates: start: 202104, end: 2021
  18. HALOPERIDOL [Suspect]
     Active Substance: HALOPERIDOL
     Dosage: 15 MILLIGRAM, QD, 15 MG/DAY
     Route: 065
     Dates: start: 202105, end: 2021
  19. HALOPERIDOL [Suspect]
     Active Substance: HALOPERIDOL
     Dosage: 7.5 MILLIGRAM, QD, 7.5 MG/DAY
     Route: 065
     Dates: start: 202105, end: 2021
  20. HALOPERIDOL [Suspect]
     Active Substance: HALOPERIDOL
     Dosage: 15 MILLIGRAM, QD
     Route: 065
     Dates: start: 202105, end: 2021
  21. RISPERIDONE [Suspect]
     Active Substance: RISPERIDONE
     Indication: Psychotic symptom
     Dosage: 4 MILLIGRAM, QD, 4 MG/DAY
     Route: 065
     Dates: start: 202103
  22. RISPERIDONE [Suspect]
     Active Substance: RISPERIDONE
     Indication: Schizophrenia
     Dosage: 6 MILLIGRAM, QD, 6 MG/DAY
     Route: 065
     Dates: start: 202106
  23. RISPERIDONE [Suspect]
     Active Substance: RISPERIDONE
     Dosage: 6 MILLIGRAM, QD, 6 MG/DAY
     Route: 065
     Dates: start: 202107
  24. RISPERIDONE [Suspect]
     Active Substance: RISPERIDONE
     Dosage: 6 MILLIGRAM, QD, 6 MG/DAY
     Route: 065
     Dates: start: 202109
  25. RISPERIDONE [Suspect]
     Active Substance: RISPERIDONE
     Dosage: 6 MILLIGRAM, QD, 6 MG/DAY
     Route: 065
     Dates: start: 202110
  26. BUSPIRONE [Suspect]
     Active Substance: BUSPIRONE HYDROCHLORIDE
     Indication: Psychotic symptom
     Dosage: 30 MILLIGRAM, QD, 30 MG/DAY
     Route: 065
     Dates: start: 202109
  27. BUSPIRONE [Suspect]
     Active Substance: BUSPIRONE HYDROCHLORIDE
     Indication: Schizophrenia
     Dosage: 30 MILLIGRAM, QD, 30 MG/DAY
     Route: 065
     Dates: start: 202110
  28. BUSPIRONE [Suspect]
     Active Substance: BUSPIRONE HYDROCHLORIDE
     Dosage: 30 MILLIGRAM, QD, 30 MG/DAY
     Route: 065
     Dates: start: 202111
  29. BUSPIRONE [Suspect]
     Active Substance: BUSPIRONE HYDROCHLORIDE
     Dosage: UNK(DOWN TITRATION OF BUSPIRONE)
     Route: 065
     Dates: start: 202112
  30. QUETIAPINE [Suspect]
     Active Substance: QUETIAPINE
     Indication: Psychotic symptom
     Dosage: 50 MILLIGRAM, QD, 50 MG/DAY
     Route: 065
     Dates: start: 202104
  31. QUETIAPINE [Suspect]
     Active Substance: QUETIAPINE
     Indication: Schizophrenia
     Dosage: 50 MILLIGRAM, QD, 50 MG/DAY
     Route: 065
     Dates: start: 202107
  32. TRIHEXYPHENIDYL [Concomitant]
     Active Substance: TRIHEXYPHENIDYL
     Indication: Parkinsonism
     Dosage: UNK
     Route: 065
     Dates: start: 202104
  33. TRIHEXYPHENIDYL [Concomitant]
     Active Substance: TRIHEXYPHENIDYL
     Dosage: UNK
     Route: 065
     Dates: start: 202105
  34. ALPRAZOLAM [Concomitant]
     Active Substance: ALPRAZOLAM
     Indication: Psychotic symptom
     Dosage: UNK
     Route: 065
     Dates: start: 202109
  35. ALPRAZOLAM [Concomitant]
     Active Substance: ALPRAZOLAM
     Dosage: UNK
     Route: 065
     Dates: start: 202110
  36. CARIPRAZINE [Concomitant]
     Active Substance: CARIPRAZINE
     Indication: Schizophrenia
     Dosage: 6 MILLIGRAM, QD (UP-TITRATION)
     Route: 065
     Dates: start: 202110
  37. CARIPRAZINE [Concomitant]
     Active Substance: CARIPRAZINE
     Indication: Psychotic symptom
     Dosage: 6 MILLIGRAM, QD
     Route: 065
     Dates: start: 202111
  38. CARIPRAZINE [Concomitant]
     Active Substance: CARIPRAZINE
     Dosage: 6 MILLIGRAM, QD
     Route: 065
     Dates: start: 202112
  39. CARIPRAZINE [Concomitant]
     Active Substance: CARIPRAZINE
     Dosage: 6 MILLIGRAM, QD
     Route: 065
     Dates: start: 202201
  40. CARIPRAZINE [Concomitant]
     Active Substance: CARIPRAZINE
     Dosage: 6 MILLIGRAM, QD
     Route: 065
     Dates: start: 202202
  41. DIAZEPAM [Concomitant]
     Active Substance: DIAZEPAM
     Indication: Psychotic symptom
     Dosage: UNK
     Route: 065
     Dates: start: 202104
  42. DIAZEPAM [Concomitant]
     Active Substance: DIAZEPAM
     Dosage: UNK
     Route: 065
     Dates: start: 202105

REACTIONS (8)
  - Anxiety [Recovering/Resolving]
  - Schizophrenia [Recovering/Resolving]
  - Somatic hallucination [Unknown]
  - Parkinsonism [Recovering/Resolving]
  - Treatment noncompliance [Recovering/Resolving]
  - Therapeutic product effect incomplete [Unknown]
  - Refusal of treatment by patient [Unknown]
  - Product use in unapproved indication [Unknown]

NARRATIVE: CASE EVENT DATE: 20210501
